FAERS Safety Report 7524966-6 (Version None)
Quarter: 2011Q2

REPORT INFORMATION
  Report Type: 
  Country: None (occurrence: None)
  Receive Date: 20110606
  Receipt Date: 20110523
  Transmission Date: 20111010
  Serious: Yes (Other)
  Sender: FDA-Public Use
  Company Number: US-ELI_LILLY_AND_COMPANY-US201105008562

PATIENT

DRUGS (10)
  1. CYMBALTA [Suspect]
     Indication: ANXIETY
     Route: 064
  2. AMBIEN [Concomitant]
     Route: 064
  3. SYNTHROID [Concomitant]
     Route: 064
  4. SYNTHROID [Concomitant]
     Route: 064
  5. ZOFRAN [Concomitant]
     Route: 064
  6. PRENATAL VITAMINS                  /01549301/ [Concomitant]
  7. CYMBALTA [Suspect]
     Route: 064
  8. PRENATAL VITAMINS                  /01549301/ [Concomitant]
  9. AMBIEN [Concomitant]
     Route: 064
  10. ZOFRAN [Concomitant]
     Route: 064

REACTIONS (5)
  - HYPERTENSION [None]
  - GRAND MAL CONVULSION [None]
  - SEIZURE LIKE PHENOMENA [None]
  - DRUG EXPOSURE DURING PREGNANCY [None]
  - SEROTONIN SYNDROME [None]
